FAERS Safety Report 11012426 (Version 1)
Quarter: 2015Q2

REPORT INFORMATION
  Report Type: Spontaneous
  Country: US (occurrence: None)
  Receive Date: 20150410
  Receipt Date: 20150410
  Transmission Date: 20150821
  Serious: No
  Sender: FDA-Public Use
  Company Number: None

PATIENT
  Age: 72 Year
  Sex: Male

DRUGS (1)
  1. AMIODARONE 150 MG/3ML UNABLE TO CONFIRM [Suspect]
     Active Substance: AMIODARONE
     Dosage: 150 MG, ONCE, INTRAVENOUS
     Route: 042

REACTIONS (4)
  - Flushing [None]
  - Eye movement disorder [None]
  - Feeling abnormal [None]
  - Musculoskeletal stiffness [None]

NARRATIVE: CASE EVENT DATE: 20150402
